FAERS Safety Report 7580347-0 (Version None)
Quarter: 2011Q2

REPORT INFORMATION
  Report Type: 
  Country: None (occurrence: None)
  Receive Date: 20110629
  Receipt Date: 20100922
  Transmission Date: 20111010
  Serious: Yes (Other)
  Sender: FDA-Public Use
  Company Number: US-BAYER-201024725NA

PATIENT
  Age: 17 Year
  Sex: Female
  Weight: 70.295 kg

DRUGS (13)
  1. YAZ [Suspect]
     Indication: PREMENSTRUAL SYNDROME
     Route: 048
     Dates: start: 20071101, end: 20091001
  2. WELLBUTRIN [Concomitant]
     Indication: ABDOMINAL PAIN
     Dates: start: 20080101
  3. HYDROCODONE [Concomitant]
     Dates: start: 20091101
  4. MINOCYCLINE HCL [Concomitant]
     Dates: start: 20071101, end: 20080101
  5. AZITHROMYCIN [Concomitant]
     Dates: start: 20080501
  6. YAZ [Suspect]
     Indication: DYSMENORRHOEA
  7. ADVIL LIQUI-GELS [Concomitant]
  8. DICYCLOMINE [Concomitant]
     Dates: start: 20090601
  9. YAZ [Suspect]
     Indication: CONTRACEPTION
  10. NITROFURANTOIN [Concomitant]
     Dates: start: 20100101
  11. RETIN-A MICRO [Concomitant]
     Dates: start: 20081101
  12. DIFFERIN [Concomitant]
     Dates: start: 20070701, end: 20090801
  13. TUMS [CALCIUM CARBONATE] [Concomitant]
     Indication: PAIN

REACTIONS (11)
  - CHOLELITHIASIS [None]
  - IRRITABLE BOWEL SYNDROME [None]
  - CHOLECYSTITIS CHRONIC [None]
  - DEPRESSION [None]
  - VOMITING [None]
  - LYMPHOID TISSUE HYPERPLASIA [None]
  - DIARRHOEA [None]
  - NAUSEA [None]
  - ABDOMINAL PAIN [None]
  - CHEST PAIN [None]
  - GALLBLADDER CHOLESTEROLOSIS [None]
